FAERS Safety Report 21523435 (Version 1)
Quarter: 2022Q4

REPORT INFORMATION
  Report Type: Spontaneous
  Country: FR (occurrence: FR)
  Receive Date: 20221029
  Receipt Date: 20221029
  Transmission Date: 20230112
  Serious: Yes (Hospitalization)
  Sender: FDA-Public Use
  Company Number: FR-AFSSAPS-CN20221966

PATIENT
  Age: 16 Year
  Sex: Female

DRUGS (5)
  1. ACETAMINOPHEN [Suspect]
     Active Substance: ACETAMINOPHEN
     Indication: Poisoning deliberate
     Dosage: 8 GRAM(8CP DE 1G)
     Route: 048
     Dates: start: 20220222, end: 20220222
  2. ACETAMINOPHEN\CODEINE PHOSPHATE [Suspect]
     Active Substance: ACETAMINOPHEN\CODEINE PHOSPHATE
     Indication: Poisoning deliberate
     Dosage: 16 GRAM(16G PARACETAMOL32CP DE 500MG/30MG)
     Route: 048
     Dates: start: 20220222, end: 20220222
  3. ACETAMINOPHEN\CODEINE PHOSPHATE [Suspect]
     Active Substance: ACETAMINOPHEN\CODEINE PHOSPHATE
     Dosage: 960 MILLIGRAM(960MG CODEINE32CP DE 500MG/30MG)
     Route: 048
     Dates: start: 20220222, end: 20220222
  4. KETOPROFEN [Suspect]
     Active Substance: KETOPROFEN
     Indication: Poisoning deliberate
     Dosage: 4 GRAM(40CP DE 100MG)
     Route: 048
     Dates: start: 20220222, end: 20220222
  5. TRAMADOL [Suspect]
     Active Substance: TRAMADOL
     Indication: Poisoning deliberate
     Dosage: 1500 MILLIGRAM(30CP DE 50MG)
     Route: 048
     Dates: start: 20220222, end: 20220222

REACTIONS (3)
  - Hepatic function abnormal [Recovered/Resolved]
  - Toxicity to various agents [Recovered/Resolved]
  - Vomiting [Recovered/Resolved]

NARRATIVE: CASE EVENT DATE: 20220222
